FAERS Safety Report 20673947 (Version 1)
Quarter: 2022Q2

REPORT INFORMATION
  Report Type: Spontaneous
  Country: KR (occurrence: KR)
  Receive Date: 20220405
  Receipt Date: 20220405
  Transmission Date: 20220720
  Serious: No
  Sender: FDA-Public Use
  Company Number: KR-PFIZER INC-202200502984

PATIENT
  Sex: Female

DRUGS (1)
  1. PAXLOVID [Suspect]
     Active Substance: NIRMATRELVIR\RITONAVIR
     Dosage: TWO TABLETS EACH (TWO TABLETS (NIRMATRELVIR) AND TWO TABLETS (RITONAVIR)
     Route: 048
     Dates: start: 20220331

REACTIONS (1)
  - Incorrect dose administered [Unknown]
